FAERS Safety Report 5038373-1 (Version None)
Quarter: 2006Q2

REPORT INFORMATION
  Report Type: 
  Country: None (occurrence: None)
  Receive Date: 20060627
  Receipt Date: 20060627
  Transmission Date: 20061013
  Serious: Yes (Hospitalization)
  Sender: FDA-Public Use
  Company Number: None

PATIENT
  Age: 56 Year
  Sex: Male
  Weight: 74.3899 kg

DRUGS (1)
  1. VANCOMYCIN [Suspect]
     Indication: STAPHYLOCOCCAL BACTERAEMIA
     Dosage: 1000 MG QD IV
     Route: 042

REACTIONS (6)
  - CLOSTRIDIAL INFECTION [None]
  - DIARRHOEA [None]
  - HYPERNATRAEMIA [None]
  - HYPOKALAEMIA [None]
  - PYREXIA [None]
  - TACHYCARDIA [None]
